FAERS Safety Report 8535112 (Version 3)
Quarter: 2013Q3

REPORT INFORMATION
  Report Type: Spontaneous
  Country: US (occurrence: US)
  Receive Date: 20120427
  Receipt Date: 20130725
  Transmission Date: 20140515
  Serious: Yes (Other)
  Sender: FDA-Public Use
  Company Number: US-ROCHE-784110

PATIENT
  Age: 31 Year
  Sex: Male
  Weight: 84.44 kg

DRUGS (4)
  1. ACCUTANE [Suspect]
     Indication: ACNE
     Route: 048
  2. ACCUTANE [Suspect]
     Route: 048
  3. ACCUTANE [Suspect]
     Route: 048
  4. ACCUTANE [Suspect]
     Route: 065

REACTIONS (15)
  - Colitis ulcerative [Unknown]
  - Inflammatory bowel disease [Unknown]
  - Pancreatitis [Unknown]
  - Anxiety [Unknown]
  - Insomnia [Unknown]
  - Intestinal obstruction [Unknown]
  - Rectal fissure [Unknown]
  - Depression [Unknown]
  - Irritable bowel syndrome [Unknown]
  - Dry skin [Unknown]
  - Chapped lips [Unknown]
  - Diffuse alopecia [Unknown]
  - Alanine aminotransferase increased [Recovered/Resolved]
  - Aspartate aminotransferase increased [Recovered/Resolved]
  - Uveitis [Unknown]
